FAERS Safety Report 11459056 (Version 4)
Quarter: 2015Q4

REPORT INFORMATION
  Report Type: Spontaneous
  Country: US (occurrence: US)
  Receive Date: 20150904
  Receipt Date: 20151022
  Transmission Date: 20160304
  Serious: Yes (Hospitalization, Other)
  Sender: FDA-Public Use
  Company Number: US-WATSON-2015-18314

PATIENT
  Age: 27 Year
  Sex: Male
  Weight: 73 kg

DRUGS (7)
  1. MORPHINE SULFATE (AELLC) [Suspect]
     Active Substance: MORPHINE SULFATE
     Dosage: 30 MG, UNK
     Route: 048
  2. PROPRANOLOL [Suspect]
     Active Substance: PROPRANOLOL\PROPRANOLOL HYDROCHLORIDE
     Indication: ANXIETY
     Dosage: 20 MG, BID
     Route: 048
  3. DIAZEPAM (WATSON LABORATORIES) [Suspect]
     Active Substance: DIAZEPAM
     Route: 048
  4. PREGABALIN (WATSON LABORATORIES) [Suspect]
     Active Substance: PREGABALIN
     Indication: NEURALGIA
     Dosage: 50 MG, 3-4 TIME PER DAY
     Route: 048
     Dates: start: 201508, end: 201508
  5. HYDROMORPHONE HYDROCHLORIDE (ACTAVIS LABORATORIES FL) [Suspect]
     Active Substance: HYDROMORPHONE HYDROCHLORIDE
     Indication: PAIN
     Dosage: 8 MG, UNK
     Route: 048
  6. GABAPENTIN (AELLC) [Suspect]
     Active Substance: GABAPENTIN
     Route: 048
  7. OXYCODONE HYDROCHLORIDE (AELLC) [Suspect]
     Active Substance: OXYCODONE HYDROCHLORIDE

REACTIONS (22)
  - Suicidal ideation [Unknown]
  - Hepatic failure [Unknown]
  - Heart rate decreased [Unknown]
  - Asthenia [Unknown]
  - Drug tolerance increased [Unknown]
  - Renal failure [Unknown]
  - Thinking abnormal [Unknown]
  - Fatigue [Unknown]
  - Arthralgia [Unknown]
  - Feeling abnormal [Unknown]
  - Overdose [Unknown]
  - Contusion [Unknown]
  - Balance disorder [Not Recovered/Not Resolved]
  - Drug ineffective [Unknown]
  - Chromaturia [Unknown]
  - Pulmonary embolism [Unknown]
  - Loss of consciousness [Unknown]
  - Gait disturbance [Not Recovered/Not Resolved]
  - Panic attack [Unknown]
  - Vision blurred [Unknown]
  - Disorientation [Unknown]
  - Muscle disorder [Not Recovered/Not Resolved]

NARRATIVE: CASE EVENT DATE: 201508
